FAERS Safety Report 8924923 (Version 1)
Quarter: 2012Q4

REPORT INFORMATION
  Report Type: Spontaneous
  Country: US (occurrence: None)
  Receive Date: 20121126
  Receipt Date: 20121126
  Transmission Date: 20130627
  Serious: No
  Sender: FDA-Public Use
  Company Number: None

PATIENT
  Age: 81 Year
  Sex: Male

DRUGS (1)
  1. MYRBETRIG 25MG ASTELLAS [Suspect]
     Indication: OVERACTIVE BLADDER
     Dosage: 1 pill daily po
     Dates: start: 20121112, end: 20121118

REACTIONS (2)
  - Dysuria [None]
  - Condition aggravated [None]
